FAERS Safety Report 6236819-4 (Version None)
Quarter: 2009Q2

REPORT INFORMATION
  Report Type: 
  Country: None (occurrence: None)
  Receive Date: 20090619
  Receipt Date: 20090529
  Transmission Date: 20091009
  Serious: Yes (Other)
  Sender: FDA-Public Use
  Company Number: PHHY2009AU17956

PATIENT
  Sex: Male

DRUGS (2)
  1. CLOZARIL [Suspect]
     Indication: SCHIZOPHRENIA
     Dosage: 250 MG, QD
     Dates: start: 20090328, end: 20090504
  2. CLOZARIL [Suspect]
     Dosage: 12.5 MG/DAY
     Dates: start: 20090407

REACTIONS (9)
  - BLOOD CREATINE PHOSPHOKINASE DECREASED [None]
  - BUNDLE BRANCH BLOCK RIGHT [None]
  - CARDIAC DISORDER [None]
  - ELECTROCARDIOGRAM ABNORMAL [None]
  - ELECTROCARDIOGRAM QT PROLONGED [None]
  - OROPHARYNGEAL PAIN [None]
  - PERICARDIAL EFFUSION [None]
  - SINUS TACHYCARDIA [None]
  - TROPONIN T INCREASED [None]
